FAERS Safety Report 23089917 (Version 2)
Quarter: 2024Q1

REPORT INFORMATION
  Report Type: Spontaneous
  Country: US (occurrence: US)
  Receive Date: 20231020
  Receipt Date: 20240108
  Transmission Date: 20240410
  Serious: No
  Sender: FDA-Public Use
  Company Number: US-PFIZER INC-202300318753

PATIENT
  Age: 66 Year
  Sex: Male

DRUGS (3)
  1. CIBINQO [Suspect]
     Active Substance: ABROCITINIB
     Indication: Dermatitis atopic
     Dosage: 100 MG
  2. CIBINQO [Suspect]
     Active Substance: ABROCITINIB
     Indication: Eczema
     Dosage: UNK, 1X/DAY
     Dates: start: 20230929, end: 20231213
  3. CIBINQO [Suspect]
     Active Substance: ABROCITINIB
     Indication: Lichenification

REACTIONS (1)
  - Drug ineffective [Unknown]
